FAERS Safety Report 9378897 (Version 1)
Quarter: 2013Q1

REPORT INFORMATION
  Report Type: Spontaneous
  Country: IT (occurrence: None)
  Receive Date: 20121109
  Receipt Date: 20121109
  Transmission Date: 20140127
  Serious: Yes (Death, Disabling)
  Sender: FDA-Public Use
  Company Number: 2012S1000355

PATIENT
  Age: 56 Year
  Sex: Female
  Weight: 70 kg

DRUGS (3)
  1. CUBICIN (DAPTOMYCIN) [Suspect]
     Indication: MEDIASTINITIS
     Route: 042
     Dates: start: 20120322
  2. NOREPINEPHRINE [Concomitant]
  3. GLIPRESSINA [Concomitant]

REACTIONS (3)
  - Renal failure [None]
  - Cardio-respiratory arrest [None]
  - Renal failure chronic [None]
